FAERS Safety Report 21084565 (Version 1)
Quarter: 2022Q3

REPORT INFORMATION
  Report Type: Spontaneous
  Country: US (occurrence: US)
  Receive Date: 20220714
  Receipt Date: 20220714
  Transmission Date: 20221026
  Serious: No
  Sender: FDA-Public Use
  Company Number: US-JAZZ-2022-US-020594

PATIENT
  Sex: Male

DRUGS (3)
  1. EPIDIOLEX [Suspect]
     Active Substance: CANNABIDIOL
     Indication: Lennox-Gastaut syndrome
     Dosage: WK 1: 0.5 ML BID; WK 2: 1 ML BID; WK 3: 3 ML BID
     Route: 048
  2. CLONAZEPAM [Concomitant]
     Active Substance: CLONAZEPAM
     Dosage: UNK
  3. VALPROIC ACID [Concomitant]
     Active Substance: VALPROIC ACID
     Dosage: UNK

REACTIONS (2)
  - Rash macular [Recovered/Resolved]
  - Product dose omission issue [Unknown]
